FAERS Safety Report 12984575 (Version 3)
Quarter: 2016Q4

REPORT INFORMATION
  Report Type: Report from Study
  Country: BR (occurrence: BR)
  Receive Date: 20161129
  Receipt Date: 20161219
  Transmission Date: 20170207
  Serious: Yes (Other)
  Sender: FDA-Public Use
  Company Number: PHHY2016BR163193

PATIENT
  Age: 90 Year
  Sex: Female
  Weight: 50 kg

DRUGS (17)
  1. CEBRILIN [Concomitant]
     Active Substance: PAROXETINE HYDROCHLORIDE
     Indication: DEPRESSION
     Dosage: 1 DF, QD
     Route: 065
     Dates: start: 1991
  2. RIVASTIGMINE. [Suspect]
     Active Substance: RIVASTIGMINE
     Dosage: 3 MG, Q12H (1 CAPSULE AFTER BREAKFAST AND 1 CAPSULE AFTER DINNER)
     Route: 048
     Dates: start: 201211
  3. MICARDIS [Concomitant]
     Active Substance: TELMISARTAN
     Indication: HYPERTENSION
     Dosage: 40 MG, QD (15 YEARS AGO)
     Route: 048
  4. RISPERIDONA [Concomitant]
     Active Substance: RISPERIDONE
     Indication: ANXIETY
  5. CARVEDILOL. [Concomitant]
     Active Substance: CARVEDILOL
     Indication: HYPERTENSION
     Dosage: 125 MG, QD (2 YEARS AGO)
     Route: 048
  6. NORIPURUM [Concomitant]
     Active Substance: IRON POLYMALTOSE
     Indication: ANAEMIA
     Dosage: 0.5 DF, QD (8 MONTHS AGO)
     Route: 048
  7. RISPERIDONA [Concomitant]
     Active Substance: RISPERIDONE
     Indication: AGITATION
     Dosage: 1 DF, QD (FROM 3 MONTHS AGO)
     Route: 048
  8. EXELON [Suspect]
     Active Substance: RIVASTIGMINE TARTRATE
     Indication: DEMENTIA ALZHEIMER^S TYPE
     Dosage: 2 DF, BID
     Route: 048
     Dates: start: 2013
  9. MIRTAZAPINE. [Concomitant]
     Active Substance: MIRTAZAPINE
     Indication: AGITATION
     Dosage: 30 MG, QD (FROM 3 YEARS AGO)
     Route: 048
  10. RANITIDINE. [Concomitant]
     Active Substance: RANITIDINE
     Indication: PROPHYLAXIS
     Dosage: 150 MG, QD (3 YEARS AGO)
     Route: 048
  11. EXELON PATCH [Suspect]
     Active Substance: RIVASTIGMINE
     Indication: DEMENTIA ALZHEIMER^S TYPE
     Route: 062
  12. MIRTAZAPINE. [Concomitant]
     Active Substance: MIRTAZAPINE
     Indication: ANXIETY
  13. ESPIROLACTONA [Concomitant]
     Indication: OEDEMA
     Dosage: 25 MG, QD (3 YEARS AGO)
     Route: 048
  14. CLOPIDOGREL [Concomitant]
     Active Substance: CLOPIDOGREL BISULFATE
     Indication: PRODUCT USED FOR UNKNOWN INDICATION
     Dosage: 1 DF, UNK
     Route: 048
  15. RIVASTIGMINE. [Suspect]
     Active Substance: RIVASTIGMINE
     Indication: DEMENTIA ALZHEIMER^S TYPE
     Dosage: 1.5 MG, Q12H (1 CAPSULE AFTER BREAKFAST AND 1 CAPSULE AFTER DINNER)
     Route: 048
  16. MIRTAZAPINA [Concomitant]
     Active Substance: MIRTAZAPINE
     Indication: ANXIETY
     Dosage: 30 MG, QD
     Route: 048
  17. RIVASTIGMINE. [Suspect]
     Active Substance: RIVASTIGMINE
     Dosage: 4.5 MG, Q12H (1 CAPSULE AFTER BREAKFAST AND 1 CAPSULE AFTER DINNER)
     Route: 048

REACTIONS (32)
  - Scoliosis [Not Recovered/Not Resolved]
  - Wrong technique in product usage process [Not Recovered/Not Resolved]
  - Generalised erythema [Unknown]
  - Crying [Unknown]
  - Insomnia [Unknown]
  - Vomiting [Unknown]
  - Blood pressure increased [Not Recovered/Not Resolved]
  - Sedation [Unknown]
  - Nervous system disorder [Unknown]
  - Malaise [Unknown]
  - Feeling abnormal [Not Recovered/Not Resolved]
  - Eating disorder [Not Recovered/Not Resolved]
  - Lacrimation increased [Not Recovered/Not Resolved]
  - Product difficult to swallow [Not Recovered/Not Resolved]
  - Nausea [Unknown]
  - Condition aggravated [Not Recovered/Not Resolved]
  - Limb injury [Unknown]
  - Retching [Unknown]
  - Stress [Unknown]
  - Deformity [Unknown]
  - Drug ineffective [Unknown]
  - Drug dependence [Not Recovered/Not Resolved]
  - Body height decreased [Not Recovered/Not Resolved]
  - Muscle atrophy [Unknown]
  - Product taste abnormal [Unknown]
  - Weight decreased [Not Recovered/Not Resolved]
  - Agitation [Not Recovered/Not Resolved]
  - Depression [Unknown]
  - Anxiety [Not Recovered/Not Resolved]
  - Dysphagia [Unknown]
  - Fall [Unknown]
  - Aggression [Unknown]

NARRATIVE: CASE EVENT DATE: 201211
